FAERS Safety Report 6389484-X (Version None)
Quarter: 2009Q4

REPORT INFORMATION
  Report Type: 
  Country: None (occurrence: None)
  Receive Date: 20091003
  Receipt Date: 20090929
  Transmission Date: 20100525
  Serious: Yes (Hospitalization)
  Sender: FDA-Public Use
  Company Number: 1000007471

PATIENT
  Age: 59 Year
  Sex: Male

DRUGS (6)
  1. NAMENDA [Suspect]
     Indication: DEMENTIA ALZHEIMER'S TYPE
     Dosage: 5 MG (5 MG,  1 IN 1 D),ORAL; 10 MG (5 MG,2 IN 1 D),ORAL; 15 MG,ORAL;  20 MG (10 MQ, 2 IN 1 D),ORAL
     Route: 048
  2. NAMENDA [Suspect]
     Indication: DEMENTIA ALZHEIMER'S TYPE
     Dosage: 5 MG (5 MG,  1 IN 1 D),ORAL; 10 MG (5 MG,2 IN 1 D),ORAL; 15 MG,ORAL;  20 MG (10 MQ, 2 IN 1 D),ORAL
     Route: 048
  3. NAMENDA [Suspect]
     Indication: DEMENTIA ALZHEIMER'S TYPE
     Dosage: 5 MG (5 MG,  1 IN 1 D),ORAL; 10 MG (5 MG,2 IN 1 D),ORAL; 15 MG,ORAL;  20 MG (10 MQ, 2 IN 1 D),ORAL
     Route: 048
     Dates: start: 20090201
  4. ARICEPT [Concomitant]
  5. CELEXA [Concomitant]
  6. CRESTOR [Concomitant]

REACTIONS (5)
  - BRADYCARDIA [None]
  - FACE INJURY [None]
  - FALL [None]
  - LOSS OF CONSCIOUSNESS [None]
  - SYNCOPE [None]
